FAERS Safety Report 7809889-7 (Version None)
Quarter: 2011Q4

REPORT INFORMATION
  Report Type: 
  Country: None (occurrence: None)
  Receive Date: 20111012
  Receipt Date: 20111003
  Transmission Date: 20120403
  Serious: Yes (Other)
  Sender: FDA-Public Use
  Company Number: PHHY2011GB87135

PATIENT
  Age: 39 Year
  Sex: Female
  Weight: 55 kg

DRUGS (1)
  1. CITALOPRAM [Suspect]
     Dosage: UNK
     Route: 048
     Dates: start: 20110721, end: 20110921

REACTIONS (3)
  - BLOOD PRESSURE INCREASED [None]
  - SWELLING [None]
  - PROTEINURIA [None]
